FAERS Safety Report 9479341 (Version 1)
Quarter: 2013Q3

REPORT INFORMATION
  Report Type: Spontaneous
  Country: CA (occurrence: CA)
  Receive Date: 20130827
  Receipt Date: 20130827
  Transmission Date: 20140515
  Serious: Yes (Other)
  Sender: FDA-Public Use
  Company Number: CA-ROCHE-1265547

PATIENT
  Sex: Female
  Weight: 72.6 kg

DRUGS (3)
  1. XELODA [Suspect]
     Indication: COLON CANCER
     Route: 048
  2. SERTRALINE [Concomitant]
  3. ZOPICLONE [Concomitant]

REACTIONS (2)
  - Ileostomy [Unknown]
  - Disease progression [Not Recovered/Not Resolved]
